FAERS Safety Report 9633620 (Version 6)
Quarter: 2015Q1

REPORT INFORMATION
  Report Type: Report from Study
  Country: US (occurrence: US)
  Receive Date: 20131021
  Receipt Date: 20150316
  Transmission Date: 20150721
  Serious: Yes (Hospitalization, Other)
  Sender: FDA-Public Use
  Company Number: US-SA-2013SA104237

PATIENT
  Age: 63 Year
  Sex: Male
  Weight: 86.18 kg

DRUGS (4)
  1. AUBAGIO [Suspect]
     Active Substance: TERIFLUNOMIDE
     Indication: MULTIPLE SCLEROSIS
     Route: 048
     Dates: start: 20130705, end: 201502
  2. AUBAGIO [Suspect]
     Active Substance: TERIFLUNOMIDE
     Indication: MULTIPLE SCLEROSIS
     Route: 048
     Dates: start: 201203
  3. FLOMAX [Concomitant]
     Active Substance: TAMSULOSIN HYDROCHLORIDE
     Indication: PROSTATIC DISORDER
  4. AUBAGIO [Suspect]
     Active Substance: TERIFLUNOMIDE
     Indication: MULTIPLE SCLEROSIS
     Route: 048
     Dates: start: 20150219

REACTIONS (9)
  - Fall [Unknown]
  - Pollakiuria [Unknown]
  - Hip fracture [Unknown]
  - Seizure [Unknown]
  - Speech disorder [Recovering/Resolving]
  - Hunger [Unknown]
  - Gait disturbance [Recovering/Resolving]
  - Abnormal behaviour [Unknown]
  - Dementia [Unknown]

NARRATIVE: CASE EVENT DATE: 201310
